FAERS Safety Report 9871124 (Version 1)
Quarter: 2014Q1

REPORT INFORMATION
  Report Type: Spontaneous
  Country: US (occurrence: US)
  Receive Date: 20140205
  Receipt Date: 20140205
  Transmission Date: 20141002
  Serious: No
  Sender: FDA-Public Use
  Company Number: US-GILEAD-2013-0075633

PATIENT
  Sex: Male

DRUGS (1)
  1. STRIBILD [Suspect]
     Indication: PROPHYLAXIS
     Dosage: UNK
     Dates: start: 201305

REACTIONS (7)
  - Chromaturia [Unknown]
  - Decreased appetite [Unknown]
  - Chills [Unknown]
  - Somnolence [Unknown]
  - Myalgia [Unknown]
  - Fatigue [Unknown]
  - Abdominal pain [Unknown]
